FAERS Safety Report 15334519 (Version 3)
Quarter: 2019Q3

REPORT INFORMATION
  Report Type: Spontaneous
  Country: FR (occurrence: FR)
  Receive Date: 20180830
  Receipt Date: 20190919
  Transmission Date: 20191004
  Serious: Yes (Hospitalization, Other)
  Sender: FDA-Public Use
  Company Number: FR-PFIZER INC-2018345283

PATIENT
  Age: 64 Year
  Sex: Female

DRUGS (18)
  1. TAZOCILLINE [Concomitant]
     Active Substance: PIPERACILLIN SODIUM\TAZOBACTAM SODIUM
     Indication: INFECTION
     Dosage: 8 G, DAILY
     Route: 042
     Dates: start: 20180623, end: 20180624
  2. MIANSERIN HCL [Concomitant]
     Active Substance: MIANSERIN HYDROCHLORIDE
     Indication: DEPRESSION
     Dosage: 10 ML, DAILY
     Route: 048
     Dates: start: 20180704, end: 20180718
  3. AMLOR [Concomitant]
     Active Substance: AMLODIPINE BESYLATE
     Dosage: 10 MG, DAILY
     Route: 048
     Dates: start: 20180715
  4. LAROXYL [Concomitant]
     Active Substance: AMITRIPTYLINE HYDROCHLORIDE
     Dosage: 15 MG, DAILY
     Dates: start: 20180713, end: 20180718
  5. CETORNAN [Concomitant]
     Dosage: 20 G, DAILY
     Route: 048
     Dates: start: 20180705, end: 20180718
  6. TOPALGIC [Concomitant]
     Indication: PAIN
     Dosage: 50 MG, DAILY
     Route: 042
     Dates: start: 20180707
  7. CALCIUM FOLINATE [Concomitant]
     Active Substance: LEUCOVORIN CALCIUM
     Dosage: 100 MG, DAILY
     Route: 042
     Dates: start: 20180615
  8. SERESTA [Concomitant]
     Active Substance: OXAZEPAM
     Indication: ANXIETY
     Dosage: 30 MG, DAILY
     Route: 048
     Dates: start: 20180704, end: 20180718
  9. HEPARIN [Concomitant]
     Active Substance: HEPARIN SODIUM
     Indication: THROMBOSIS PROPHYLAXIS
     Dosage: 10000 IU, DAILY
     Route: 058
     Dates: start: 20180614
  10. TARDYFERON [Concomitant]
     Active Substance: FERROUS SULFATE
     Dosage: 1 DF, DAILY
     Route: 048
     Dates: start: 20180717, end: 20180718
  11. LYRICA [Suspect]
     Active Substance: PREGABALIN
     Dosage: 25 MG, DAILY
     Route: 048
     Dates: start: 20180704, end: 20180718
  12. KALINOX [Concomitant]
     Active Substance: NITROUS OXIDE\OXYGEN
     Dosage: BETWEEN 11 AND 25 MIN PER DAY
     Route: 055
     Dates: start: 20180710, end: 20180718
  13. ZOPICLONE [Concomitant]
     Active Substance: ZOPICLONE
     Indication: INSOMNIA
     Dosage: 3.75 MG, DAILY
     Route: 048
     Dates: start: 20180704, end: 20180718
  14. PARACETAMOL [Concomitant]
     Active Substance: ACETAMINOPHEN
     Indication: PAIN
     Dosage: 3 G, DAILY
     Route: 042
     Dates: start: 20180614
  15. AMIODARONE HCL [Suspect]
     Active Substance: AMIODARONE HYDROCHLORIDE
     Indication: HYPERTENSION
     Dosage: 300 MG, UNK, (FIRST IN IV AND THEN ORALLY)
     Route: 042
     Dates: start: 20180621
  16. AMIODARONE HCL [Suspect]
     Active Substance: AMIODARONE HYDROCHLORIDE
     Dosage: 300 MG, UNK, (FIRST IN IV AND THEN ORALLY)
     Route: 048
     Dates: end: 201807
  17. MORPHINE [Concomitant]
     Active Substance: MORPHINE
     Indication: PAIN
     Dosage: 1 TO 5 MG A DAY
     Route: 042
     Dates: end: 20180718
  18. PRIMPERAN [Concomitant]
     Active Substance: METOCLOPRAMIDE HYDROCHLORIDE
     Indication: NAUSEA
     Dosage: 10 MG, DAILY
     Route: 042
     Dates: start: 20180715, end: 20180716

REACTIONS (1)
  - Agranulocytosis [Recovered/Resolved]

NARRATIVE: CASE EVENT DATE: 20180719
